FAERS Safety Report 8622827-2 (Version None)
Quarter: 2012Q3

REPORT INFORMATION
  Report Type: 
  Country: None (occurrence: None)
  Receive Date: 20120827
  Receipt Date: 20120813
  Transmission Date: 20120928
  Serious: Yes (Death, Hospitalization)
  Sender: FDA-Public Use
  Company Number: DE-RANBAXY-2009RR-25761

PATIENT
  Age: 65 Year
  Sex: Female
  Weight: 64 kg

DRUGS (16)
  1. ZYVOX [Suspect]
     Dosage: UNK
     Route: 065
     Dates: start: 20081025, end: 20090127
  2. TORSEMIDE [Interacting]
     Indication: HYPERTENSION
     Dosage: 10 MG, BID
     Route: 048
     Dates: start: 20080729
  3. ACETAMINOPHEN [Concomitant]
     Indication: PAIN
     Dosage: 1 G, TID
     Route: 048
     Dates: start: 20080905, end: 20081003
  4. SPIRONOLACTONE [Interacting]
     Indication: HYPERTENSION
     Dosage: 100 MG, QD
     Route: 048
     Dates: start: 20080901, end: 20081009
  5. AMIODARONE HCL [Suspect]
     Indication: ATRIAL FIBRILLATION
     Dosage: 200 MG, QD
     Route: 048
     Dates: start: 20080901, end: 20081010
  6. ENOXAPARIN SODIUM [Concomitant]
     Indication: THROMBOSIS PROPHYLAXIS
     Dosage: 60 MG, QD
     Route: 058
     Dates: start: 20080729, end: 20081007
  7. SIMVASTATIN [Concomitant]
     Indication: HYPERLIPIDAEMIA
     Dosage: 20 MG, QD
     Route: 048
     Dates: start: 20061201
  8. ZYVOX [Suspect]
     Indication: INTERVERTEBRAL DISCITIS
     Dosage: 600 MG, BID
     Route: 048
     Dates: start: 20080922, end: 20081009
  9. XIPAMIDE [Interacting]
     Indication: HYPERTENSION
     Dosage: 10 MG, QD
     Route: 048
     Dates: start: 20080729, end: 20081008
  10. AMITRIPTYLINE HCL [Concomitant]
     Indication: PAIN
     Dosage: 50 MG, BID
     Route: 048
     Dates: start: 20080729, end: 20081008
  11. NOVALGIN [Concomitant]
     Indication: PAIN
     Dosage: UNK
     Route: 048
     Dates: start: 20080905, end: 20081009
  12. OMEPRAZOLE [Concomitant]
     Indication: PROPHYLAXIS AGAINST GASTROINTESTINAL ULCER
     Dosage: 40 MG, QD
     Route: 048
     Dates: start: 20061201
  13. OXYCODONE HCL [Concomitant]
     Indication: PAIN
     Dosage: 10 MG, BID
     Route: 048
     Dates: start: 20080901
  14. RAMIPRIL [Suspect]
     Indication: HYPERTENSION
     Dosage: 2.5 MG, QD
     Route: 048
     Dates: start: 20080901, end: 20081009
  15. METOPROLOL TARTRATE [Concomitant]
     Indication: HYPERTENSION
     Dosage: 95 MG, QD
     Route: 048
     Dates: start: 20080901
  16. DIGITOXIN TAB [Concomitant]
     Indication: ATRIAL FIBRILLATION
     Dosage: 0.07 MG, QD
     Route: 048
     Dates: start: 20061201

REACTIONS (2)
  - RENAL FAILURE ACUTE [None]
  - DRUG INTERACTION [None]
